FAERS Safety Report 16759933 (Version 1)
Quarter: 2019Q3

REPORT INFORMATION
  Report Type: Spontaneous
  Country: US (occurrence: US)
  Receive Date: 20190830
  Receipt Date: 20190830
  Transmission Date: 20191005
  Serious: Yes (Hospitalization)
  Sender: FDA-Public Use
  Company Number: US-PFIZER INC-2019370013

PATIENT
  Age: 59 Year
  Sex: Male
  Weight: 103.4 kg

DRUGS (4)
  1. LIDOCAINE AND EPINEPHRINE [Concomitant]
     Active Substance: EPINEPHRINE\LIDOCAINE HYDROCHLORIDE
     Dosage: UNK, LIDOCAINE HYDROCHLORIDE 1% WITH EPINEPHRINE
  2. LIDOCAINE HCL [Concomitant]
     Active Substance: LIDOCAINE HYDROCHLORIDE
     Dosage: UNK, 2%
  3. SODIUM BICARBONATE. [Suspect]
     Active Substance: SODIUM BICARBONATE
     Indication: LOCAL ANAESTHESIA
     Dosage: UNK (2-4 ML)
  4. LIDOCAINE HCL [Concomitant]
     Active Substance: LIDOCAINE HYDROCHLORIDE
     Dosage: UNK, 1%

REACTIONS (3)
  - Injection site pain [Recovered/Resolved]
  - Product contamination physical [Unknown]
  - Poor quality product administered [Unknown]

NARRATIVE: CASE EVENT DATE: 20190612
